FAERS Safety Report 25542986 (Version 1)
Quarter: 2025Q3

REPORT INFORMATION
  Report Type: Spontaneous
  Country: BR (occurrence: BR)
  Receive Date: 20250711
  Receipt Date: 20250711
  Transmission Date: 20251021
  Serious: Yes (Other)
  Sender: STRIDES
  Company Number: BR-STRIDES ARCOLAB LIMITED-2025SP008400

PATIENT
  Age: 39 Year
  Sex: Male

DRUGS (5)
  1. URSODIOL [Suspect]
     Active Substance: URSODIOL
     Indication: Cholestatic liver injury
     Route: 065
  2. URSODIOL [Suspect]
     Active Substance: URSODIOL
     Indication: Drug-induced liver injury
  3. PREDNISOLONE [Suspect]
     Active Substance: PREDNISOLONE
     Indication: Cholestatic liver injury
     Route: 065
  4. PREDNISOLONE [Suspect]
     Active Substance: PREDNISOLONE
     Indication: Drug-induced liver injury
  5. STANOZOLOL [Concomitant]
     Active Substance: STANOZOLOL
     Indication: Muscle building therapy
     Route: 030

REACTIONS (2)
  - Disease progression [Recovered/Resolved]
  - Off label use [Unknown]
